FAERS Safety Report 5149421-2 (Version None)
Quarter: 2006Q4

REPORT INFORMATION
  Report Type: 
  Country: None (occurrence: None)
  Receive Date: 20061113
  Receipt Date: 20060106
  Transmission Date: 20070319
  Serious: No
  Sender: FDA-Public Use
  Company Number: 431158

PATIENT
  Age: 65 Year
  Sex: Female

DRUGS (3)
  1. COREG [Suspect]
     Indication: HYPERTENSION
     Dosage: 3.125MCG TWICE PER DAY
     Route: 048
  2. ALBUTEROL [Concomitant]
     Route: 055
  3. TYLENOL [Concomitant]

REACTIONS (1)
  - PRODUCTIVE COUGH [None]
